FAERS Safety Report 8657776 (Version 3)
Quarter: 2013Q4

REPORT INFORMATION
  Report Type: Spontaneous
  Country: US (occurrence: US)
  Receive Date: 20120710
  Receipt Date: 20131204
  Transmission Date: 20140711
  Serious: Yes (Other)
  Sender: FDA-Public Use
  Company Number: US-PFIZER INC-2012162541

PATIENT
  Age: 50 Year
  Sex: Female

DRUGS (3)
  1. CHANTIX [Suspect]
     Dosage: 0.5 MG, UNK
     Dates: start: 20071112, end: 20110622
  2. CHANTIX [Suspect]
     Dosage: 1 MG, UNK
     Dates: start: 20080115
  3. CHANTIX [Suspect]
     Dosage: 1 MG, 1X/DAY
     Dates: start: 201106, end: 201106

REACTIONS (4)
  - Suicide attempt [Unknown]
  - Aggression [Unknown]
  - Abnormal behaviour [Unknown]
  - Mental disorder [Unknown]
